FAERS Safety Report 9405402 (Version 1)
Quarter: 2013Q3

REPORT INFORMATION
  Report Type: Spontaneous
  Country: TW (occurrence: TW)
  Receive Date: 20130717
  Receipt Date: 20130717
  Transmission Date: 20140515
  Serious: Yes (Other)
  Sender: FDA-Public Use
  Company Number: TW-B.I. PHARMACEUTICALS,INC./RIDGEFIELD-2013-BI-20914YA

PATIENT
  Age: 35 Year
  Sex: Female

DRUGS (1)
  1. HARNAL [Suspect]
     Indication: DYSURIA
     Dosage: FORMULATION:ORODISPERSIBLE CR TABLET
     Route: 048
     Dates: end: 20130705

REACTIONS (4)
  - Dizziness [Unknown]
  - Hypotension [Unknown]
  - Head injury [Unknown]
  - Off label use [Unknown]
